FAERS Safety Report 9659675 (Version 1)
Quarter: 2013Q4

REPORT INFORMATION
  Report Type: Report from Study
  Country: US (occurrence: US)
  Receive Date: 20131031
  Receipt Date: 20131031
  Transmission Date: 20140711
  Serious: Yes (Other)
  Sender: FDA-Public Use
  Company Number: US-JNJFOC-20131014985

PATIENT
  Sex: Female
  Weight: 75.3 kg

DRUGS (2)
  1. REMICADE [Suspect]
     Indication: RHEUMATOID ARTHRITIS
     Route: 042
     Dates: start: 2008
  2. REMICADE [Suspect]
     Indication: RHEUMATOID ARTHRITIS
     Route: 042
     Dates: start: 2000

REACTIONS (6)
  - Skin cancer [Recovered/Resolved]
  - Optic atrophy [Not Recovered/Not Resolved]
  - Retinal detachment [Unknown]
  - Blindness unilateral [Not Recovered/Not Resolved]
  - Corneal disorder [Recovered/Resolved]
  - Procedural complication [Recovered/Resolved]
